FAERS Safety Report 11152006 (Version 1)
Quarter: 2015Q2

REPORT INFORMATION
  Report Type: Spontaneous
  Country: PE (occurrence: PE)
  Receive Date: 20150601
  Receipt Date: 20150601
  Transmission Date: 20150821
  Serious: Yes (Other)
  Sender: FDA-Public Use
  Company Number: PE-PFIZER INC-2015181418

PATIENT
  Age: 88 Year
  Sex: Male

DRUGS (1)
  1. LYRICA [Suspect]
     Active Substance: PREGABALIN
     Dosage: 75 MG, UNK

REACTIONS (1)
  - Kidney infection [Not Recovered/Not Resolved]
